FAERS Safety Report 6041068-9 (Version None)
Quarter: 2009Q1

REPORT INFORMATION
  Report Type: 
  Country: None (occurrence: None)
  Receive Date: 20090116
  Receipt Date: 20080811
  Transmission Date: 20090719
  Serious: Yes (Other)
  Sender: FDA-Public Use
  Company Number: US-BRISTOL-MYERS SQUIBB COMPANY-14296511

PATIENT
  Age: 52 Year
  Sex: Male

DRUGS (1)
  1. ABILIFY [Suspect]
     Dosage: 5MG FOR ONE WEEK

REACTIONS (1)
  - CONVULSION [None]
